FAERS Safety Report 7861329-8 (Version None)
Quarter: 2011Q4

REPORT INFORMATION
  Report Type: 
  Country: None (occurrence: None)
  Receive Date: 20111027
  Receipt Date: 20111023
  Transmission Date: 20120403
  Serious: Yes (Death)
  Sender: FDA-Public Use
  Company Number: IT-JNJFOC-20111009993

PATIENT
  Sex: Male

DRUGS (3)
  1. DARUNAVIR ETHANOLATE [Suspect]
     Indication: HIV INFECTION
     Route: 048
  2. ENFUVIRTIDE [Concomitant]
     Indication: HIV INFECTION
  3. ALBUTEROL SULFATE AUTOHALER [Concomitant]
     Indication: ILL-DEFINED DISORDER

REACTIONS (1)
  - ROAD TRAFFIC ACCIDENT [None]
